FAERS Safety Report 18336184 (Version 1)
Quarter: 2020Q4

REPORT INFORMATION
  Report Type: Spontaneous
  Country: TH (occurrence: TH)
  Receive Date: 20201001
  Receipt Date: 20201001
  Transmission Date: 20210113
  Serious: Yes (Other)
  Sender: FDA-Public Use
  Company Number: NVSC2020TH258213

PATIENT
  Age: 57 Year
  Sex: Male

DRUGS (1)
  1. AFINITOR [Suspect]
     Active Substance: EVEROLIMUS
     Indication: PRODUCT USED FOR UNKNOWN INDICATION
     Dosage: 10 MG, QD
     Route: 065

REACTIONS (12)
  - Metastases to liver [Unknown]
  - Hepatic lesion [Unknown]
  - Lung opacity [Unknown]
  - Infection [Unknown]
  - Fatigue [Unknown]
  - Hepatic vein stenosis [Unknown]
  - Degenerative bone disease [Unknown]
  - Portal vein thrombosis [Unknown]
  - Bronchiectasis [Unknown]
  - Ascites [Unknown]
  - Renal cyst [Unknown]
  - Hyperglycaemia [Unknown]
